FAERS Safety Report 7761873-8 (Version None)
Quarter: 2011Q3

REPORT INFORMATION
  Report Type: 
  Country: None (occurrence: None)
  Receive Date: 20110915
  Receipt Date: 20110830
  Transmission Date: 20111222
  Serious: Yes (Hospitalization, Other)
  Sender: FDA-Public Use
  Company Number: 2011MA012738

PATIENT
  Age: 14 Year
  Sex: Male

DRUGS (15)
  1. SULFONAMIDE (NO PREF. NAME) [Suspect]
     Indication: ANTIFUNGAL PROPHYLAXIS
     Dosage: 5 MG/KG, BID, 3 DAYS, WEEK
  2. TRIMETHOPRIM [Suspect]
     Indication: ANTIFUNGAL PROPHYLAXIS
     Dosage: 5 MG/KG, BID, 3 DYS/WEEK,
  3. OXALIPLATIN [Suspect]
     Indication: NEUROENDOCRINE CARCINOMA
     Dosage: 85 MG/M2/2H, IV
     Route: 042
  4. ONDANSETRON [Suspect]
     Indication: PROPHYLAXIS OF NAUSEA AND VOMITING
     Dosage: 5 MG/M2, IV
     Route: 042
  5. AMPHOTERICIN B [Suspect]
     Indication: FUNGAL INFECTION
     Dosage: 4X2 ML/D,PO
     Route: 048
  6. AMPHOTERICIN B [Suspect]
     Indication: PROPHYLAXIS
     Dosage: 4X2 ML/D,PO
     Route: 048
  7. IRINOTECAN HCL [Suspect]
     Indication: NEUROENDOCRINE CARCINOMA
     Dosage: 175 MG/M2/2H, IV
     Route: 042
  8. DIMENHYDRINATE [Suspect]
     Indication: PROPHYLAXIS OF NAUSEA AND VOMITING
  9. LOPERAMIDE [Suspect]
     Indication: CHOLINERGIC SYNDROME
     Dosage: 2 MG, PO
     Route: 048
  10. LOPERAMIDE [Suspect]
     Indication: DIARRHOEA
     Dosage: 2 MG, PO
     Route: 048
  11. DEXTROSE 5% [Suspect]
     Indication: NEUROENDOCRINE CARCINOMA
     Dosage: 5%/250 ML, IV
     Route: 042
  12. GEMCITABINE [Suspect]
     Indication: NEUROENDOCRINE CARCINOMA
     Dosage: 1000 MG/M2/0.5; IV
     Route: 042
  13. ANTIBIOTIC (NO PREF. NAME) [Suspect]
     Indication: PROPHYLAXIS
     Dosage: IV
     Route: 042
  14. SODIUM CHLORIDE 0.9% [Suspect]
     Indication: NEUROENDOCRINE CARCINOMA
     Dosage: IV
     Route: 042
  15. TROPISETRON HYDROCHLORIDE (TROPISETRON HYDROCHLORIDE) [Suspect]
     Indication: PROPHYLAXIS OF NAUSEA AND VOMITING
     Dosage: 0.2 MG/KGT, IV
     Route: 042

REACTIONS (7)
  - STEM CELL TRANSPLANT [None]
  - THROMBOCYTOPENIA [None]
  - LEUKOPENIA [None]
  - CHOLINERGIC SYNDROME [None]
  - C-REACTIVE PROTEIN INCREASED [None]
  - DIARRHOEA [None]
  - HAEMATOTOXICITY [None]
